FAERS Safety Report 21011443 (Version 1)
Quarter: 2022Q2

REPORT INFORMATION
  Report Type: Spontaneous
  Country: FR (occurrence: FR)
  Receive Date: 20220627
  Receipt Date: 20220627
  Transmission Date: 20220721
  Serious: Yes (Life-Threatening, Hospitalization, Other)
  Sender: FDA-Public Use
  Company Number: None

PATIENT
  Age: 66 Year
  Sex: Male
  Weight: 57 kg

DRUGS (5)
  1. CEFTRIAXONE SODIUM [Suspect]
     Active Substance: CEFTRIAXONE SODIUM
     Indication: Encephalitis
     Dosage: 3 GRAM, BID
     Route: 041
     Dates: start: 20220509, end: 20220523
  2. LEVOFLOXACIN [Suspect]
     Active Substance: LEVOFLOXACIN
     Indication: Product used for unknown indication
     Dosage: UNK UNK, QD (1.5/D)(START DATE: 24-MAY-2022)
     Route: 065
  3. LEVOFLOXACIN [Suspect]
     Active Substance: LEVOFLOXACIN
     Indication: Acute sinusitis
     Dosage: 750 MILLIGRAM, QD
     Route: 048
     Dates: start: 20220508, end: 20220527
  4. VANCOMYCIN [Suspect]
     Active Substance: VANCOMYCIN
     Indication: Encephalitis
     Dosage: 3.5 GRAM, QD (750 MG AT 02:00 AM AND 02:00 PM, 1 G AT 08:00 AM AND 08:00 PM)
     Route: 041
     Dates: start: 20220509, end: 20220523
  5. PANTOPRAZOLE [Concomitant]
     Active Substance: PANTOPRAZOLE
     Dosage: UNK UNK, QD (0-0-1)
     Route: 065
     Dates: start: 20220524

REACTIONS (2)
  - Agranulocytosis [Recovered/Resolved]
  - Rash morbilliform [Recovering/Resolving]

NARRATIVE: CASE EVENT DATE: 20220523
